FAERS Safety Report 6701079-4 (Version None)
Quarter: 2010Q2

REPORT INFORMATION
  Report Type: 
  Country: None (occurrence: None)
  Receive Date: 20100428
  Receipt Date: 20100414
  Transmission Date: 20101027
  Serious: Yes (Other)
  Sender: FDA-Public Use
  Company Number: US-ELI_LILLY_AND_COMPANY-US201003005818

PATIENT
  Sex: Female

DRUGS (9)
  1. FORTEO [Suspect]
     Indication: OSTEOPOROSIS
     Dosage: 20 UG, DAILY (1/D)
     Route: 065
     Dates: start: 20091021
  2. VERAPAMIL [Concomitant]
     Dosage: 80 MG, 2/D
  3. FUROSEMIDE [Concomitant]
     Indication: OEDEMA PERIPHERAL
     Dosage: 20 MG, AS NEEDED
  4. MULTI-VITAMIN [Concomitant]
     Dosage: UNK, DAILY (1/D)
  5. PRILOSEC [Concomitant]
     Dosage: UNK, DAILY (1/D)
  6. CITRACAL + D /01438101/ [Concomitant]
     Dosage: 4 TAB DAILY
  7. CITRUCEL [Concomitant]
     Dosage: UNK, DAILY (1/D)
  8. AMITRIPTYLINE [Concomitant]
     Dosage: 5 MG, EACH EVENING
  9. BETAMETHASONE VALERATE [Concomitant]
     Indication: PRURITUS
     Dosage: 1%

REACTIONS (16)
  - ABDOMINAL DISCOMFORT [None]
  - DIZZINESS [None]
  - FATIGUE [None]
  - FEELING ABNORMAL [None]
  - HYPOACUSIS [None]
  - IMPAIRED HEALING [None]
  - LOCALISED INFECTION [None]
  - MALAISE [None]
  - MIGRAINE [None]
  - OEDEMA PERIPHERAL [None]
  - PAIN [None]
  - PRURITUS [None]
  - SKIN CANCER [None]
  - SLEEP DISORDER [None]
  - STRESS [None]
  - VISUAL IMPAIRMENT [None]
